FAERS Safety Report 7917206 (Version 2)
Quarter: 2018Q4

REPORT INFORMATION
  Report Type: Spontaneous
  Country: SE (occurrence: SE)
  Receive Date: 20110427
  Receipt Date: 20181109
  Transmission Date: 20190205
  Serious: Yes (Hospitalization)
  Sender: FDA-Public Use
  Company Number: SE-ASTRAZENECA-2011SE22409

PATIENT
  Age: 95 Year
  Sex: Female

DRUGS (9)
  1. DUROFERON [Concomitant]
     Active Substance: FERROUS SULFATE
  2. IMPUGAN [Concomitant]
     Active Substance: FUROSEMIDE
  3. ACETYLCYSTEIN [Concomitant]
     Active Substance: ACETYLCYSTEINE
  4. PANOCOD [Concomitant]
     Active Substance: ACETAMINOPHEN\CODEINE PHOSPHATE
  5. SPIRONOLAKTON [Concomitant]
     Active Substance: SPIRONOLACTONE
  6. ATACAND [Suspect]
     Active Substance: CANDESARTAN CILEXETIL
     Indication: CARDIAC FAILURE
     Route: 048
     Dates: end: 201102
  7. SIFROL [Concomitant]
     Active Substance: PRAMIPEXOLE
  8. VISCOTEARS [Concomitant]
     Active Substance: CARBOMER
  9. LAKTULOS [Concomitant]

REACTIONS (1)
  - Hypotension [Recovered/Resolved]

NARRATIVE: CASE EVENT DATE: 201102
